FAERS Safety Report 9690114 (Version 1)
Quarter: 2013Q4

REPORT INFORMATION
  Report Type: Report from Study
  Country: RU (occurrence: RU)
  Receive Date: 20131115
  Receipt Date: 20131115
  Transmission Date: 20140711
  Serious: Yes (Hospitalization)
  Sender: FDA-Public Use
  Company Number: RU-ROCHE-1302114

PATIENT
  Age: 58 Year
  Sex: Male
  Weight: 110 kg

DRUGS (2)
  1. PEG-INTERFERON ALFA 2A [Suspect]
     Indication: CHRONIC HEPATITIS C
     Dosage: LAST DATE OF DOSE PRIOR TO SAE: 08/NOV/2013
     Route: 058
     Dates: start: 20130208
  2. RIBAVIRIN [Suspect]
     Indication: CHRONIC HEPATITIS C
     Dosage: LAST DATE OF DOSE PRIOR TO SAE: 08/NOV/2013
     Route: 048
     Dates: start: 20130208

REACTIONS (1)
  - Cerebrovascular accident [Not Recovered/Not Resolved]
